FAERS Safety Report 18508260 (Version 1)
Quarter: 2020Q4

REPORT INFORMATION
  Report Type: Spontaneous
  Country: IT (occurrence: IT)
  Receive Date: 20201116
  Receipt Date: 20201116
  Transmission Date: 20210114
  Serious: Yes (Death)
  Sender: FDA-Public Use
  Company Number: IT-ACELLA PHARMACEUTICALS, LLC-2095962

PATIENT
  Age: 48 Year
  Sex: Female

DRUGS (6)
  1. HALOPERIDOL. [Concomitant]
     Active Substance: HALOPERIDOL
  2. GABAPENTIN. [Suspect]
     Active Substance: GABAPENTIN
     Indication: INTENTIONAL OVERDOSE
  3. CLOTIAPINE [Concomitant]
     Active Substance: CLOTHIAPINE
  4. PROPRANOLOL HYDROCHLORIDE. [Concomitant]
     Active Substance: PROPRANOLOL HYDROCHLORIDE
  5. CLONAZEPAM. [Concomitant]
     Active Substance: CLONAZEPAM
  6. FLUVOXAMINE MALEATE. [Suspect]
     Active Substance: FLUVOXAMINE MALEATE

REACTIONS (1)
  - Death [Fatal]
